FAERS Safety Report 6322865-9 (Version None)
Quarter: 2009Q3

REPORT INFORMATION
  Report Type: 
  Country: None (occurrence: None)
  Receive Date: 20090824
  Receipt Date: 20090819
  Transmission Date: 20100115
  Serious: Yes (Other)
  Sender: FDA-Public Use
  Company Number: PHHY2009CH35320

PATIENT
  Sex: Male

DRUGS (2)
  1. LESCOL [Suspect]
     Indication: HYPERCHOLESTEROLAEMIA
     Dosage: 80MG/DAY
     Dates: start: 19970101
  2. LESCOL [Suspect]
     Indication: XANTHELASMA

REACTIONS (3)
  - ABDOMINAL PAIN [None]
  - BACK PAIN [None]
  - RETROPERITONEAL FIBROSIS [None]
